FAERS Safety Report 15004373 (Version 1)
Quarter: 2018Q2

REPORT INFORMATION
  Report Type: Spontaneous
  Country: US (occurrence: US)
  Receive Date: 20180524
  Receipt Date: 20180524
  Transmission Date: 20180711
  Serious: Yes (Life-Threatening, Hospitalization, Disabling, Other)
  Sender: FDA-Public Use
  Company Number: None

PATIENT
  Age: 79 Year
  Sex: Female
  Weight: 54.7 kg

DRUGS (1)
  1. XARELTO [Suspect]
     Active Substance: RIVAROXABAN
     Indication: ATRIAL FIBRILLATION
     Route: 048
     Dates: start: 20121101, end: 20170715

REACTIONS (11)
  - Cerebral haematoma [None]
  - Dyspnoea [None]
  - Facial paralysis [None]
  - Investigation noncompliance [None]
  - Lung adenocarcinoma [None]
  - Respiratory distress [None]
  - Ischaemic stroke [None]
  - Respiratory failure [None]
  - Haemorrhage [None]
  - Lethargy [None]
  - Hemiparesis [None]

NARRATIVE: CASE EVENT DATE: 20170717
